FAERS Safety Report 8089078-4 (Version None)
Quarter: 2012Q1

REPORT INFORMATION
  Report Type: 
  Country: None (occurrence: None)
  Receive Date: 20120128
  Receipt Date: 20110624
  Transmission Date: 20120608
  Serious: No
  Sender: FDA-Public Use
  Company Number: US-ABBOTT-11P-163-0834468-00

PATIENT
  Sex: Female
  Weight: 69.916 kg

DRUGS (4)
  1. PROTONIX [Concomitant]
     Indication: DYSPEPSIA
  2. MULTI-VITAMINS [Concomitant]
     Indication: PRODUCT USED FOR UNKNOWN INDICATION
  3. HUMIRA [Suspect]
     Indication: RHEUMATOID ARTHRITIS
     Dates: start: 20080101, end: 20110501
  4. METHOTREXATE [Concomitant]
     Indication: RHEUMATOID ARTHRITIS

REACTIONS (3)
  - JOINT SWELLING [None]
  - RHEUMATOID ARTHRITIS [None]
  - ARTHRALGIA [None]
